FAERS Safety Report 17239682 (Version 1)
Quarter: 2020Q1

REPORT INFORMATION
  Report Type: Spontaneous
  Country: US (occurrence: US)
  Receive Date: 20200106
  Receipt Date: 20200106
  Transmission Date: 20200409
  Serious: Yes (Congenital Anomaly)
  Sender: FDA-Public Use
  Company Number: US-ANIPHARMA-2019-US-023953

PATIENT
  Sex: Female
  Weight: 2.99 kg

DRUGS (1)
  1. PYRIDOSTIGMINE (NON-SPECIFIC) [Suspect]
     Active Substance: PYRIDOSTIGMINE
     Indication: PRODUCT USED FOR UNKNOWN INDICATION
     Route: 015

REACTIONS (2)
  - Exposure during pregnancy [Unknown]
  - Microcephaly [Not Recovered/Not Resolved]
